FAERS Safety Report 10014554 (Version 3)
Quarter: 2014Q3

REPORT INFORMATION
  Report Type: Spontaneous
  Country: JP (occurrence: JP)
  Receive Date: 20140317
  Receipt Date: 20140721
  Transmission Date: 20150326
  Serious: Yes (Life-Threatening, Hospitalization)
  Sender: FDA-Public Use
  Company Number: JP-BAYER-2014-024592

PATIENT
  Age: 19 Year
  Sex: Female
  Weight: 43.08 kg

DRUGS (3)
  1. YAZ [Suspect]
     Active Substance: DROSPIRENONE\ETHINYL ESTRADIOL
     Indication: DYSMENORRHOEA
     Dosage: 1 DF, UNK
     Route: 048
     Dates: start: 201308, end: 20131104
  2. ALLEGRA [Concomitant]
     Active Substance: FEXOFENADINE HYDROCHLORIDE
     Indication: ASTHMA
     Dosage: DAILY DOSE 120 MG
     Route: 048
  3. THIATON [Concomitant]
     Active Substance: TIQUIZIUM BROMIDE
     Indication: GASTRITIS
     Dosage: DAILY DOSE 30 MG
     Route: 048

REACTIONS (9)
  - Back pain [None]
  - Pulmonary embolism [Recovered/Resolved]
  - Pyrexia [None]
  - Deep vein thrombosis [Recovering/Resolving]
  - Chest pain [Recovered/Resolved]
  - Asthma [Recovered/Resolved]
  - Myalgia [Recovering/Resolving]
  - Pain in extremity [Recovering/Resolving]
  - Peripheral swelling [Recovering/Resolving]

NARRATIVE: CASE EVENT DATE: 20131023
